FAERS Safety Report 25156552 (Version 1)
Quarter: 2025Q2

REPORT INFORMATION
  Report Type: Spontaneous
  Country: US (occurrence: None)
  Receive Date: 20250403
  Receipt Date: 20250403
  Transmission Date: 20250717
  Serious: Yes (Hospitalization)
  Sender: FDA-CTU
  Company Number: None

PATIENT
  Age: 47 Year
  Sex: Female
  Weight: 71.1 kg

DRUGS (3)
  1. NEXTSTELLIS [Suspect]
     Active Substance: DROSPIRENONE\ESTETROL MONOHYDRATE
     Indication: Abnormal uterine bleeding
     Dosage: FREQUENCY : DAILY;?
     Route: 048
     Dates: start: 20250307, end: 20250321
  2. PROMETRIUM [Concomitant]
     Active Substance: PROGESTERONE
     Dates: start: 20241202, end: 20250321
  3. VYVANSE [Concomitant]
     Active Substance: LISDEXAMFETAMINE DIMESYLATE
     Dates: start: 20220101

REACTIONS (3)
  - Transient ischaemic attack [None]
  - Carotid artery disease [None]
  - Lacunar stroke [None]

NARRATIVE: CASE EVENT DATE: 20250321
